FAERS Safety Report 9175799 (Version 1)
Quarter: 2013Q1

REPORT INFORMATION
  Report Type: Spontaneous
  Country: US (occurrence: US)
  Receive Date: 20130320
  Receipt Date: 20130320
  Transmission Date: 20140127
  Serious: Yes (Other)
  Sender: FDA-Public Use
  Company Number: US-ELI_LILLY_AND_COMPANY-US201302006077

PATIENT
  Age: 80 Year
  Sex: Male

DRUGS (5)
  1. ADCIRCA [Suspect]
     Indication: PULMONARY HYPERTENSION
     Dosage: 40 MG, QD
     Dates: start: 201302
  2. LASIX [Concomitant]
     Dosage: 20 MG, QD
  3. LASIX [Concomitant]
     Dosage: 40 MG, QD
  4. DIGOXIN [Concomitant]
     Indication: ATRIAL FIBRILLATION
  5. DILTIAZEM [Concomitant]

REACTIONS (1)
  - Right ventricular failure [Unknown]
